FAERS Safety Report 13815452 (Version 1)
Quarter: 2017Q3

REPORT INFORMATION
  Report Type: Spontaneous
  Country: US (occurrence: US)
  Receive Date: 20170731
  Receipt Date: 20170731
  Transmission Date: 20171127
  Serious: Yes (Hospitalization)
  Sender: FDA-Public Use
  Company Number: None

PATIENT
  Age: 74 Year
  Sex: Female
  Weight: 74.25 kg

DRUGS (1)
  1. CARTIA XT [Suspect]
     Active Substance: DILTIAZEM HYDROCHLORIDE
     Indication: PRODUCT USED FOR UNKNOWN INDICATION

REACTIONS (19)
  - Joint swelling [None]
  - Faeces pale [None]
  - Abdominal pain upper [None]
  - Peripheral swelling [None]
  - Pharyngeal ulceration [None]
  - Muscle spasms [None]
  - Dizziness [None]
  - Yellow skin [None]
  - Syncope [None]
  - Headache [None]
  - Dry mouth [None]
  - Fatigue [None]
  - Eye irritation [None]
  - Sinusitis [None]
  - Ear infection [None]
  - Erythema [None]
  - Throat irritation [None]
  - Oropharyngeal pain [None]
  - Asthenia [None]
